FAERS Safety Report 4864595-6 (Version None)
Quarter: 2005Q4

REPORT INFORMATION
  Report Type: 
  Country: None (occurrence: None)
  Receive Date: 20051222
  Receipt Date: 20051212
  Transmission Date: 20060501
  Serious: Yes (Congenital Anomaly, Other)
  Sender: FDA-Public Use
  Company Number: PHFR2005GB04021

PATIENT
  Age: 6 Month
  Sex: Male

DRUGS (1)
  1. ELIDEL [Suspect]
     Route: 064

REACTIONS (5)
  - ATRIAL SEPTAL DEFECT [None]
  - DRUG EXPOSURE DURING PREGNANCY [None]
  - FAILURE TO THRIVE [None]
  - SMALL FOR DATES BABY [None]
  - VENTRICULAR SEPTAL DEFECT [None]
